FAERS Safety Report 21996656 (Version 1)
Quarter: 2023Q1

REPORT INFORMATION
  Report Type: 
  Country: US (occurrence: US)
  Receive Date: 20230215
  Receipt Date: 20230215
  Transmission Date: 20230418
  Serious: Yes (Hospitalization)
  Sender: FDA-Public Use
  Company Number: US-Kiniksa Pharmaceuticals Ltd.-2022KPU000290

PATIENT
  Age: 29 Year
  Sex: Female

DRUGS (1)
  1. ARCALYST [Suspect]
     Active Substance: RILONACEPT
     Indication: Product used for unknown indication
     Route: 058

REACTIONS (3)
  - Rash erythematous [Unknown]
  - Hospitalisation [Unknown]
  - Hospitalisation [Unknown]

NARRATIVE: CASE EVENT DATE: 20220223
